FAERS Safety Report 15152590 (Version 2)
Quarter: 2018Q3

REPORT INFORMATION
  Report Type: Spontaneous
  Country: US (occurrence: US)
  Receive Date: 20180717
  Receipt Date: 20180831
  Transmission Date: 20181010
  Serious: Yes (Hospitalization, Other)
  Sender: FDA-Public Use
  Company Number: US-BION-007311

PATIENT
  Age: 85 Year
  Sex: Female
  Weight: 78 kg

DRUGS (3)
  1. CYANOCOBALAMIN. [Concomitant]
     Active Substance: CYANOCOBALAMIN
  2. ALEVE [Suspect]
     Active Substance: NAPROXEN SODIUM
     Indication: ARTHRALGIA
     Dosage: 1 EVERY MORNING
     Route: 048
  3. UBIDECARENONE [Concomitant]
     Active Substance: UBIDECARENONE

REACTIONS (3)
  - Incorrect drug administration duration [Not Recovered/Not Resolved]
  - Haematochezia [Unknown]
  - Diarrhoea [Recovered/Resolved]

NARRATIVE: CASE EVENT DATE: 201806
